FAERS Safety Report 6528566-6 (Version None)
Quarter: 2010Q1

REPORT INFORMATION
  Report Type: 
  Country: None (occurrence: None)
  Receive Date: 20100105
  Receipt Date: 20100105
  Transmission Date: 20100710
  Serious: No
  Sender: FDA-Public Use
  Company Number: None

PATIENT
  Age: 43 Year
  Sex: Female
  Weight: 86.1834 kg

DRUGS (1)
  1. HYDROMORPHONE HCL [Suspect]
     Dosage: 8MG EVERY 4 HOURS PO
     Route: 048

REACTIONS (3)
  - DRUG INEFFECTIVE [None]
  - PAIN [None]
  - PRODUCT SUBSTITUTION ISSUE [None]
